FAERS Safety Report 5897526-0 (Version None)
Quarter: 2008Q3

REPORT INFORMATION
  Report Type: 
  Country: None (occurrence: None)
  Receive Date: 20080916
  Receipt Date: 20071231
  Transmission Date: 20090109
  Serious: Yes (Other)
  Sender: FDA-Public Use
  Company Number: S07-USA-06505-01

PATIENT
  Age: 48 Year
  Sex: Female

DRUGS (4)
  1. CITALOPRAM (CITALOPRAM) (TABLETS) [Suspect]
     Indication: DEPRESSION
     Dosage: ORAL
     Route: 048
     Dates: end: 20071201
  2. LYRICA [Concomitant]
  3. BLOOD PRESSURE MEDICATION (NOS) [Concomitant]
  4. OTHER MEDICATIONS (NOS) [Concomitant]

REACTIONS (4)
  - DIARRHOEA [None]
  - DRUG WITHDRAWAL SYNDROME [None]
  - NAUSEA [None]
  - SUICIDAL IDEATION [None]
